FAERS Safety Report 9456924 (Version 1)
Quarter: 2013Q3

REPORT INFORMATION
  Report Type: Report from Study
  Country: ZA (occurrence: ZA)
  Receive Date: 20130813
  Receipt Date: 20130813
  Transmission Date: 20140515
  Serious: Yes (Death)
  Sender: FDA-Public Use
  Company Number: ZA-ROCHE-1261347

PATIENT
  Age: 61 Year
  Sex: Female

DRUGS (10)
  1. RECORMON [Suspect]
     Indication: NEPHROGENIC ANAEMIA
     Route: 058
     Dates: start: 20050302
  2. RECORMON [Suspect]
     Route: 058
     Dates: start: 200505
  3. RECORMON [Suspect]
     Route: 058
     Dates: start: 200510
  4. RECORMON [Suspect]
     Route: 058
     Dates: start: 200606
  5. RECORMON [Suspect]
     Route: 058
     Dates: start: 200908
  6. RECORMON [Suspect]
     Route: 058
     Dates: start: 201004
  7. RECORMON [Suspect]
     Route: 058
     Dates: start: 201207
  8. MIRCERA [Suspect]
     Indication: NEPHROGENIC ANAEMIA
     Route: 058
     Dates: start: 20130717
  9. MIRCERA [Suspect]
     Route: 058
     Dates: start: 201103
  10. MIRCERA [Suspect]
     Route: 058
     Dates: start: 201106

REACTIONS (1)
  - Death [Fatal]
